FAERS Safety Report 16550924 (Version 5)
Quarter: 2019Q4

REPORT INFORMATION
  Report Type: Report from Study
  Country: US (occurrence: US)
  Receive Date: 20190710
  Receipt Date: 20191111
  Transmission Date: 20200122
  Serious: Yes (Other)
  Sender: FDA-Public Use
  Company Number: US-BRISTOL-MYERS SQUIBB COMPANY-BMS-2019-036452

PATIENT
  Sex: Female

DRUGS (4)
  1. NIVOLUMAB [Suspect]
     Active Substance: NIVOLUMAB
     Indication: MALIGNANT MELANOMA
     Dosage: UNK UNK, Q3WK
     Route: 042
  2. NIVOLUMAB [Suspect]
     Active Substance: NIVOLUMAB
     Indication: PRODUCT USED FOR UNKNOWN INDICATION
     Dosage: UNK, Q4WK
     Route: 042
     Dates: end: 20190626
  3. IPILIMUMAB [Suspect]
     Active Substance: IPILIMUMAB
     Indication: MALIGNANT MELANOMA
     Dosage: UNK, Q3WK
     Route: 042
  4. TYLENOL [Concomitant]
     Active Substance: ACETAMINOPHEN
     Indication: ARTHRITIS
     Dosage: UNK, QD
     Route: 065

REACTIONS (19)
  - Arthritis [Unknown]
  - Skin atrophy [Recovering/Resolving]
  - Back pain [Unknown]
  - Dysphonia [Unknown]
  - Headache [Unknown]
  - Decreased appetite [Unknown]
  - Gastrointestinal disorder [Recovered/Resolved]
  - Contusion [Recovered/Resolved]
  - Thyroid disorder [Unknown]
  - Pruritus [Unknown]
  - Rash macular [Unknown]
  - Insomnia [Unknown]
  - Dyspnoea [Unknown]
  - Constipation [Unknown]
  - Peripheral coldness [Unknown]
  - Fatigue [Unknown]
  - Paraesthesia [Unknown]
  - Hypoaesthesia [Unknown]
  - Dizziness [Unknown]
